FAERS Safety Report 8161787-8 (Version None)
Quarter: 2012Q1

REPORT INFORMATION
  Report Type: 
  Country: None (occurrence: None)
  Receive Date: 20120224
  Receipt Date: 20110415
  Transmission Date: 20120608
  Serious: No
  Sender: FDA-Public Use
  Company Number: US-BRISTOL-MYERS SQUIBB COMPANY-15678634

PATIENT
  Age: 69 Year
  Sex: Female

DRUGS (4)
  1. METFORMIN HCL [Suspect]
     Indication: DIABETES MELLITUS
     Route: 065
     Dates: start: 20110301, end: 20110301
  2. LANTUS [Suspect]
     Indication: DIABETES MELLITUS
     Dosage: LANTUS SOLOSTAR
     Route: 058
     Dates: start: 20110320
  3. XANAX [Concomitant]
  4. GLIPIZIDE [Concomitant]
     Dates: start: 20110301

REACTIONS (2)
  - VOMITING [None]
  - VISION BLURRED [None]
